FAERS Safety Report 4733387-0 (Version None)
Quarter: 2005Q3

REPORT INFORMATION
  Report Type: 
  Country: None (occurrence: None)
  Receive Date: 20050801
  Receipt Date: 20050719
  Transmission Date: 20060218
  Serious: Yes (Hospitalization, Other)
  Sender: FDA-Public Use
  Company Number: 2005104128

PATIENT
  Age: 55 Year
  Sex: Female

DRUGS (2)
  1. LIPITOR [Suspect]
     Indication: BLOOD CHOLESTEROL INCREASED
     Dosage: 20 MG (20 MG 1 IN 1D) ORAL
     Dates: start: 20031201, end: 20050708
  2. BENICAR [Concomitant]

REACTIONS (12)
  - ARTHRALGIA [None]
  - BEDRIDDEN [None]
  - DRUG EFFECT DECREASED [None]
  - FALL [None]
  - MOVEMENT DISORDER [None]
  - MUSCLE SPASMS [None]
  - MUSCULOSKELETAL STIFFNESS [None]
  - MYALGIA [None]
  - PELVIC FRACTURE [None]
  - POLLAKIURIA [None]
  - SLEEP DISORDER [None]
  - THROMBOSIS [None]
